FAERS Safety Report 19864025 (Version 1)
Quarter: 2021Q3

REPORT INFORMATION
  Report Type: Spontaneous
  Country: US (occurrence: US)
  Receive Date: 20210921
  Receipt Date: 20210921
  Transmission Date: 20211014
  Serious: No
  Sender: FDA-Public Use
  Company Number: US-ACORDA-ACO_169950_2021

PATIENT
  Sex: Male

DRUGS (3)
  1. CARBIDOPA/LEVODOPA [Concomitant]
     Active Substance: CARBIDOPA\LEVODOPA
     Indication: PRODUCT USED FOR UNKNOWN INDICATION
     Dosage: 1.5 PILLS 4 TIMES A DAY
     Route: 065
  2. INBRIJA [Suspect]
     Active Substance: LEVODOPA
     Indication: ON AND OFF PHENOMENON
     Dosage: 84 MILLIGRAM, AS NEEDED, NOT TO EXCEED 5 DOSES A DAY
     Dates: start: 20210806
  3. INBRIJA [Suspect]
     Active Substance: LEVODOPA
     Indication: PARKINSON^S DISEASE

REACTIONS (8)
  - Freezing phenomenon [Unknown]
  - Condition aggravated [Unknown]
  - Functional gastrointestinal disorder [Unknown]
  - Drug ineffective [Unknown]
  - Product residue present [Unknown]
  - Cough [Not Recovered/Not Resolved]
  - Device issue [Unknown]
  - Device use issue [Unknown]
